FAERS Safety Report 19077454 (Version 2)
Quarter: 2021Q3

REPORT INFORMATION
  Report Type: Report from Study
  Country: JP (occurrence: JP)
  Receive Date: 20210331
  Receipt Date: 20210820
  Transmission Date: 20211014
  Serious: Yes (Hospitalization, Other)
  Sender: FDA-Public Use
  Company Number: JP-GLAXOSMITHKLINE-JP2017JPN092366

PATIENT
  Age: 3 Decade
  Sex: Male

DRUGS (26)
  1. BAKTAR COMBINATION TABLETS [Concomitant]
     Active Substance: SULFAMETHOXAZOLE\TRIMETHOPRIM
     Indication: PNEUMOCYSTIS JIROVECII PNEUMONIA
     Dosage: 3 DF, TID
     Dates: start: 20160921, end: 20160929
  2. BENAMBAX [Concomitant]
     Active Substance: PENTAMIDINE
     Indication: ANTIFUNGAL PROPHYLAXIS
     Dosage: 100 MG, UNK
     Dates: start: 20161201, end: 20181120
  3. ZOLPIDEM TARTRATE OD TABLET [Concomitant]
     Indication: PROPHYLAXIS
     Dosage: UNK
     Dates: start: 20190930, end: 20191002
  4. DOLUTEGRAVIR [Suspect]
     Active Substance: DOLUTEGRAVIR
     Dosage: 50 MG, 1D
     Route: 048
     Dates: start: 20181018, end: 20190402
  5. ATOVAQUONE. [Suspect]
     Active Substance: ATOVAQUONE
     Indication: PNEUMOCYSTIS JIROVECII PNEUMONIA
     Dosage: 750 MG, BID
     Route: 048
     Dates: start: 20160930, end: 20161012
  6. SULBACILLIN INJECTION [Suspect]
     Active Substance: AMPICILLIN SODIUM\SULBACTAM SODIUM
     Indication: PNEUMONIA
     Dosage: UNK
     Dates: start: 20190927, end: 20191006
  7. ZITHROMAC [Concomitant]
     Active Substance: AZITHROMYCIN DIHYDRATE
     Indication: OPPORTUNISTIC INFECTION PROPHYLAXIS
     Dosage: 1200 MG, WE
     Dates: start: 20160927, end: 20170224
  8. ZOLPIDEM TARTRATE OD TABLET [Concomitant]
     Dosage: UNK
     Dates: start: 20191011, end: 2019
  9. FAMOTIDINE TABLETS [Concomitant]
     Active Substance: FAMOTIDINE
     Indication: PROPHYLAXIS
     Dosage: UNK
     Dates: start: 20191009, end: 20191028
  10. VENTOLINE [Suspect]
     Active Substance: ALBUTEROL
     Indication: PROPHYLAXIS
     Dosage: UNK
     Route: 055
     Dates: start: 20191003, end: 20200420
  11. TRUVADA [Concomitant]
     Active Substance: EMTRICITABINE\TENOFOVIR DISOPROXIL FUMARATE
     Dosage: 1 DF, 1D
     Dates: start: 20180501, end: 20180625
  12. BENAMBAX [Concomitant]
     Active Substance: PENTAMIDINE
     Dosage: UNK
     Dates: start: 20191003, end: 20200420
  13. NAUZELIN OD TABLETS [Concomitant]
     Indication: PROPHYLAXIS
     Dosage: UNK
     Dates: start: 20200131, end: 20200221
  14. DOLUTEGRAVIR [Suspect]
     Active Substance: DOLUTEGRAVIR
     Indication: HIV INFECTION
     Dosage: 50 MG, 1D
     Route: 048
     Dates: start: 20161021, end: 20180402
  15. TRUVADA [Concomitant]
     Active Substance: EMTRICITABINE\TENOFOVIR DISOPROXIL FUMARATE
     Dosage: 1 DF, 1D
     Dates: start: 20181018, end: 20190221
  16. VALIXA [Concomitant]
     Active Substance: VALGANCICLOVIR
     Indication: CYTOMEGALOVIRUS INFECTION
     Dosage: 900 MG, BID
     Dates: start: 20161015, end: 20161021
  17. DESCOVY [Concomitant]
     Active Substance: EMTRICITABINE\TENOFOVIR ALAFENAMIDE FUMARATE
     Dosage: 1 DF, 1D
     Dates: start: 20191012
  18. LEVOFLOXACIN OPHTHALMIC SOLUTION [Concomitant]
     Active Substance: LEVOFLOXACIN
     Dosage: UNK
     Dates: start: 20181102, end: 201812
  19. DOLUTEGRAVIR [Suspect]
     Active Substance: DOLUTEGRAVIR
     Dosage: 50 MG, 1D
     Route: 048
     Dates: start: 20180501, end: 20180625
  20. TRUVADA [Concomitant]
     Active Substance: EMTRICITABINE\TENOFOVIR DISOPROXIL FUMARATE
     Indication: HIV INFECTION
     Dosage: 1 DF, 1D
     Dates: start: 20161021, end: 20180402
  21. PREDONINE OPHTHALMIC OINTMENT [Concomitant]
     Dosage: UNK
     Dates: start: 20200807, end: 20201021
  22. DOLUTEGRAVIR [Suspect]
     Active Substance: DOLUTEGRAVIR
     Dosage: 50 MG, 1D
     Route: 048
     Dates: start: 20191012
  23. AMOXICILLIN HYDRATE [Suspect]
     Active Substance: AMOXICILLIN
     Indication: PERICORONITIS
     Dosage: UNK
     Route: 048
     Dates: start: 20161006, end: 20161018
  24. DESCOVY [Concomitant]
     Active Substance: EMTRICITABINE\TENOFOVIR ALAFENAMIDE FUMARATE
     Indication: HIV INFECTION
     Dosage: 1 DF, 1D
     Dates: start: 20190222, end: 20190402
  25. LUNESTA TABLETS [Concomitant]
     Indication: PROPHYLAXIS
     Dosage: UNK
     Dates: start: 20191003, end: 20191004
  26. NAUZELIN OD TABLETS [Concomitant]
     Indication: GASTROENTERITIS
     Dosage: UNK
     Dates: start: 20210322, end: 20210326

REACTIONS (16)
  - Pneumonia [Recovering/Resolving]
  - Oral candidiasis [Recovered/Resolved]
  - Drug eruption [Recovered/Resolved]
  - Lip erosion [Recovered/Resolved]
  - Treatment noncompliance [Unknown]
  - Gastroenteritis [Recovering/Resolving]
  - Syphilis [Not Recovered/Not Resolved]
  - Abdominal symptom [Recovering/Resolving]
  - Product use in unapproved indication [Unknown]
  - Pharyngitis [Recovered/Resolved]
  - Alcohol poisoning [Recovered/Resolved]
  - Liver function test increased [Not Recovered/Not Resolved]
  - Pericoronitis [Recovering/Resolving]
  - Pruritus [Not Recovered/Not Resolved]
  - Folliculitis [Recovering/Resolving]
  - Water intoxication [Recovering/Resolving]

NARRATIVE: CASE EVENT DATE: 20161009
